FAERS Safety Report 19966233 (Version 3)
Quarter: 2021Q4

REPORT INFORMATION
  Report Type: Spontaneous
  Country: US (occurrence: US)
  Receive Date: 20211018
  Receipt Date: 20211201
  Transmission Date: 20220303
  Serious: No
  Sender: FDA-Public Use
  Company Number: US-VIFOR (INTERNATIONAL) INC.-VIT-2021-07716

PATIENT
  Age: 66 Year
  Sex: Male

DRUGS (22)
  1. VELTASSA [Suspect]
     Active Substance: PATIROMER
     Indication: Hyperkalaemia
     Route: 048
     Dates: start: 20210825
  2. CARVEDILOL [Suspect]
     Active Substance: CARVEDILOL
     Indication: Blood pressure measurement
     Dates: start: 202111
  3. AMLODIPINE [Concomitant]
     Active Substance: AMLODIPINE BESYLATE
     Dates: start: 20210823
  4. AMLODIPINE [Concomitant]
     Active Substance: AMLODIPINE BESYLATE
  5. ASPIRIN [Concomitant]
     Active Substance: ASPIRIN
     Dates: start: 20210823
  6. ATORVASTATIN [Concomitant]
     Active Substance: ATORVASTATIN
     Dates: start: 20210823
  7. BUPROPION HYDROCHLORIDE [Concomitant]
     Active Substance: BUPROPION HYDROCHLORIDE
     Dates: start: 20210823
  8. FLUTICASONE SPR [Concomitant]
     Dates: start: 20210823
  9. GEMFIBROZIL [Concomitant]
     Active Substance: GEMFIBROZIL
     Dates: start: 20210823
  10. LAMOTRIGINE [Concomitant]
     Active Substance: LAMOTRIGINE
     Dates: start: 20210823
  11. LISINOPRIL [Concomitant]
     Active Substance: LISINOPRIL
     Dates: start: 20210823
  12. METOPROLOL SUCCINATE [Concomitant]
     Active Substance: METOPROLOL SUCCINATE
     Dates: start: 20210823
  13. MIRTAZAPINE [Concomitant]
     Active Substance: MIRTAZAPINE
     Dates: start: 20210823
  14. NOVOLIN R [Concomitant]
     Active Substance: INSULIN HUMAN
     Dates: start: 20210823
  15. PREGABALIN [Concomitant]
     Active Substance: PREGABALIN
     Dates: start: 20210823
  16. PROBIOTIC CHW [Concomitant]
     Dates: start: 20210823
  17. VENTOLIN HFA AER [Concomitant]
     Dates: start: 20210823
  18. VITAMIN B12 [Concomitant]
     Active Substance: CYANOCOBALAMIN
     Dates: start: 20210823
  19. VITAMIN C [Concomitant]
     Active Substance: ASCORBIC ACID
     Dates: start: 20210823
  20. VITAMIN E [Concomitant]
     Active Substance: .ALPHA.-TOCOPHEROL
     Dates: start: 20210823
  21. ZINC [Concomitant]
     Active Substance: ZINC
     Dates: start: 20210823
  22. VITAMIN D [Concomitant]
     Active Substance: VITAMIN D NOS
     Dates: start: 20210823

REACTIONS (7)
  - Ill-defined disorder [Recovered/Resolved]
  - Blood pressure fluctuation [Unknown]
  - Dizziness [Unknown]
  - Somnolence [Unknown]
  - Headache [Unknown]
  - Product dose omission issue [Unknown]
  - Fatigue [Unknown]

NARRATIVE: CASE EVENT DATE: 20210101
